FAERS Safety Report 20913626 (Version 2)
Quarter: 2022Q3

REPORT INFORMATION
  Report Type: Spontaneous
  Country: PT (occurrence: PT)
  Receive Date: 20220604
  Receipt Date: 20220708
  Transmission Date: 20221026
  Serious: Yes (Hospitalization)
  Sender: FDA-Public Use
  Company Number: PT-SA-SAC20220323000865

PATIENT
  Age: 21 Year
  Sex: Female

DRUGS (2)
  1. TRIAMCINOLONE ACETONIDE [Suspect]
     Active Substance: TRIAMCINOLONE ACETONIDE
     Indication: Drug hypersensitivity
     Route: 045
     Dates: start: 20220315
  2. BUDESONIDE\FORMOTEROL FUMARATE DIHYDRATE [Concomitant]
     Active Substance: BUDESONIDE\FORMOTEROL FUMARATE DIHYDRATE
     Indication: Asthma
     Dosage: (BUDESONIDE + FORMOTEROL): 160 ?G/DOSE + 4.5 ?G/DOSE
     Route: 065

REACTIONS (8)
  - Rash macular [Recovered/Resolved]
  - Generalised oedema [Unknown]
  - Peripheral swelling [Recovered/Resolved]
  - Feeling abnormal [Unknown]
  - Hypersensitivity [Unknown]
  - Swelling face [Recovered/Resolved]
  - Nasal congestion [Recovered/Resolved]
  - Pain [Unknown]

NARRATIVE: CASE EVENT DATE: 20220316
